FAERS Safety Report 9127075 (Version 3)
Quarter: 2013Q1

REPORT INFORMATION
  Report Type: Spontaneous
  Country: GB (occurrence: GB)
  Receive Date: 20130228
  Receipt Date: 20130315
  Transmission Date: 20140127
  Serious: Yes (Other)
  Sender: FDA-Public Use
  Company Number: PHFR2013GB001361

PATIENT
  Sex: Female

DRUGS (3)
  1. CLOZARIL [Suspect]
     Indication: SCHIZOPHRENIA
     Dosage: UNK UKN, UNK
     Route: 048
     Dates: start: 20121012
  2. CLOZARIL [Suspect]
     Dosage: 175 MG, UNK
     Route: 048
  3. CLOZARIL [Suspect]
     Dosage: 25 MG, EVERY 2 DAYS
     Dates: end: 20130309

REACTIONS (4)
  - Fall [Unknown]
  - Angina pectoris [Not Recovered/Not Resolved]
  - Heart rate increased [Unknown]
  - Tachycardia [Not Recovered/Not Resolved]
